FAERS Safety Report 10837396 (Version 1)
Quarter: 2015Q1

REPORT INFORMATION
  Report Type: Report from Study
  Country: CA (occurrence: None)
  Receive Date: 20150218
  Receipt Date: 20150218
  Transmission Date: 20150721
  Serious: Yes (Death, Hospitalization)
  Sender: FDA-Public Use
  Company Number: 2014FE02601

PATIENT
  Age: 80 Year
  Sex: Male

DRUGS (8)
  1. COVERSYL /00790702/ (PERINDOPRIL ERBUMINE) [Concomitant]
  2. GLICLAZIDE (GLICLAZIDE) [Concomitant]
     Active Substance: GLICLAZIDE
  3. CALCIUM (CALCIUM) [Concomitant]
     Active Substance: CALCIUM
  4. ATORVASTATIN (ATORVASTATIN) [Concomitant]
     Active Substance: ATORVASTATIN
  5. APO K (POTASSIUM CHLORIDE) [Concomitant]
  6. DEGARELIX (DEGARELIX) POWDER AND SOLVENT FOR SOLUTION FOR INJECTION [Suspect]
     Active Substance: DEGARELIX
     Indication: PROSTATE CANCER
     Route: 058
     Dates: start: 20140110
  7. LASIX [Concomitant]
     Active Substance: FUROSEMIDE
  8. VITAMIN D NOS (VITAMIN D NOS) [Concomitant]

REACTIONS (2)
  - Pain [None]
  - Pain management [None]

NARRATIVE: CASE EVENT DATE: 2014
